FAERS Safety Report 8210452-7 (Version None)
Quarter: 2012Q1

REPORT INFORMATION
  Report Type: 
  Country: None (occurrence: None)
  Receive Date: 20120314
  Receipt Date: 20120130
  Transmission Date: 20120608
  Serious: No
  Sender: FDA-Public Use
  Company Number: US-ASTRAZENECA-2011SE35205

PATIENT
  Age: 52 Year
  Sex: Female
  Weight: 53.5 kg

DRUGS (4)
  1. METOPROLOL SUCCINATE [Suspect]
     Indication: TACHYCARDIA
     Route: 048
     Dates: start: 20080101
  2. METOPROLOL SUCCINATE [Suspect]
     Route: 048
     Dates: start: 20111201
  3. METOPROLOL SUCCINATE [Suspect]
     Route: 048
     Dates: start: 20111201
  4. METOPROLOL SUCCINATE [Suspect]
     Indication: HEART RATE IRREGULAR
     Route: 048
     Dates: start: 20080101

REACTIONS (4)
  - BREAST DISCHARGE [None]
  - FATIGUE [None]
  - TACHYCARDIA [None]
  - FLATULENCE [None]
